FAERS Safety Report 8341328-2 (Version None)
Quarter: 2012Q2

REPORT INFORMATION
  Report Type: 
  Country: None (occurrence: None)
  Receive Date: 20120507
  Receipt Date: 20120423
  Transmission Date: 20120825
  Serious: Yes (Hospitalization, Disabling, Other)
  Sender: FDA-Public Use
  Company Number: US-MYLANLABS-2009AC000253

PATIENT
  Age: 76 Year
  Sex: Male
  Weight: 75.62 kg

DRUGS (35)
  1. VITAMIN C [Concomitant]
  2. FLAX SEED OIL [Concomitant]
  3. MAVIK [Concomitant]
  4. DIGOXIN [Suspect]
     Route: 048
     Dates: start: 19961001, end: 20091022
  5. CAPTOPRIL [Concomitant]
  6. AMINO ACID INJ [Concomitant]
  7. TOBRADEX [Concomitant]
     Route: 047
  8. TOPROL-XL [Concomitant]
  9. VALIUM [Concomitant]
  10. COREG [Concomitant]
  11. ATENOLOL [Concomitant]
  12. VITAMIN E [Concomitant]
  13. METOPROLOL TARTRATE [Concomitant]
  14. VITAMIN [Concomitant]
  15. TENORMIN [Concomitant]
  16. VICODIN [Concomitant]
  17. MULTI-VITAMIN [Concomitant]
  18. AMIODARONE HCL [Concomitant]
  19. MAGNESIUM [Concomitant]
  20. COUMADIN [Concomitant]
  21. SPIRONOLACTONE [Concomitant]
  22. L CARNITINE /00878607/ [Concomitant]
  23. E-MYCIN [Concomitant]
  24. MONOPRIL [Concomitant]
  25. ALDACTONE [Concomitant]
  26. LISINOPRIL [Concomitant]
  27. RAMIPRIL [Concomitant]
  28. COENZYME [Concomitant]
  29. CHEMET [Concomitant]
  30. FUROSEMIDE [Concomitant]
  31. BACTROBAN [Concomitant]
  32. BENADRYL [Concomitant]
  33. ACIDOPHILUS [Concomitant]
  34. TOBRAMYCIN [Concomitant]
     Route: 047
  35. CO Q-10 [Concomitant]

REACTIONS (81)
  - WALKING AID USER [None]
  - ATRIAL FIBRILLATION [None]
  - VENTRICULAR EXTRASYSTOLES [None]
  - CONGESTIVE CARDIOMYOPATHY [None]
  - FATIGUE [None]
  - MITRAL VALVE DISEASE [None]
  - ORTHOPNOEA [None]
  - CATHETERISATION CARDIAC [None]
  - SYNOVITIS [None]
  - CLAVICLE FRACTURE [None]
  - ROTATOR CUFF REPAIR [None]
  - SPINAL COLUMN STENOSIS [None]
  - ILL-DEFINED DISORDER [None]
  - PAIN IN EXTREMITY [None]
  - PANCYTOPENIA [None]
  - PULMONARY ARTERIAL HYPERTENSION [None]
  - ROTATOR CUFF SYNDROME [None]
  - DEBRIDEMENT [None]
  - PULMONARY HYPERTENSION [None]
  - HYPERTENSION [None]
  - HYPOXIA [None]
  - OBESITY [None]
  - MITRAL VALVE INCOMPETENCE [None]
  - AORTIC ARTERIOSCLEROSIS [None]
  - BACK PAIN [None]
  - CONDUCTION DISORDER [None]
  - ARTHROPATHY [None]
  - OEDEMA PERIPHERAL [None]
  - DILATATION ATRIAL [None]
  - RALES [None]
  - ECONOMIC PROBLEM [None]
  - GAIT DISTURBANCE [None]
  - VENTRICULAR TACHYCARDIA [None]
  - MUSCULOSKELETAL PAIN [None]
  - SENSORY LOSS [None]
  - ATRIAL TACHYCARDIA [None]
  - PLATELET COUNT DECREASED [None]
  - ARTHROSCOPY [None]
  - DISEASE PROGRESSION [None]
  - SLEEP APNOEA SYNDROME [None]
  - JOINT RANGE OF MOTION DECREASED [None]
  - ARRHYTHMIA [None]
  - DYSPNOEA [None]
  - LIGAMENT SPRAIN [None]
  - INTERVERTEBRAL DISC DEGENERATION [None]
  - GENERAL PHYSICAL HEALTH DETERIORATION [None]
  - CHEST PAIN [None]
  - CREPITATIONS [None]
  - PERICARDIAL EFFUSION [None]
  - ARTERIOSCLEROSIS [None]
  - CHILLS [None]
  - DRUG INTERACTION [None]
  - CARDIAC VALVE DISEASE [None]
  - CERUMEN IMPACTION [None]
  - WHEELCHAIR USER [None]
  - THROMBOCYTOPENIA [None]
  - VENTRICULAR HYPOKINESIA [None]
  - TRICUSPID VALVE INCOMPETENCE [None]
  - VENTRICULAR INTERNAL DIAMETER ABNORMAL [None]
  - CARDIOVERSION [None]
  - DIZZINESS [None]
  - PYREXIA [None]
  - ASTHENIA [None]
  - ESSENTIAL HYPERTENSION [None]
  - SPINAL OSTEOARTHRITIS [None]
  - RENAL DISORDER [None]
  - HYPOTENSION [None]
  - VENTRICULAR DYSFUNCTION [None]
  - PULMONARY GRANULOMA [None]
  - INTERVERTEBRAL DISC PROTRUSION [None]
  - GROIN PAIN [None]
  - INJURY [None]
  - IMPLANTABLE DEFIBRILLATOR INSERTION [None]
  - ARTHRALGIA [None]
  - CARDIAC FAILURE CONGESTIVE [None]
  - CARDIOMYOPATHY [None]
  - SUPRAVENTRICULAR TACHYCARDIA [None]
  - SYNOVECTOMY [None]
  - OSTEOARTHRITIS [None]
  - OXYGEN SATURATION DECREASED [None]
  - SCAN MYOCARDIAL PERFUSION ABNORMAL [None]
